FAERS Safety Report 7921520-9 (Version None)
Quarter: 2011Q4

REPORT INFORMATION
  Report Type: 
  Country: None (occurrence: None)
  Receive Date: 20111117
  Receipt Date: 20110922
  Transmission Date: 20120403
  Serious: No
  Sender: FDA-Public Use
  Company Number: US-MYLANLABS-2011S1017626

PATIENT
  Age: 62 Year
  Sex: Female

DRUGS (14)
  1. TRIAMTERENE AND HYDROCHLOROTHIAZIDE [Suspect]
     Route: 048
  2. LIPITOR [Concomitant]
     Indication: BLOOD CHOLESTEROL
     Route: 048
     Dates: start: 20110701
  3. TRIAMTERENE AND HYDROCHLOROTHIAZIDE [Suspect]
     Route: 048
     Dates: start: 20110820
  4. ALLEGRA [Concomitant]
     Indication: MULTIPLE ALLERGIES
  5. TRIAMTERENE AND HYDROCHLOROTHIAZIDE [Suspect]
     Indication: MENIERE'S DISEASE
     Route: 048
     Dates: start: 20110630
  6. CENTRUM [Concomitant]
  7. TRIAMTERENE AND HYDROCHLOROTHIAZIDE [Suspect]
     Route: 048
  8. TRIAMTERENE AND HYDROCHLOROTHIAZIDE [Suspect]
     Route: 048
  9. METOPROLOL SUCCINATE [Suspect]
     Indication: BLOOD PRESSURE INCREASED
     Route: 048
     Dates: start: 20110625, end: 20110101
  10. TRIAMTERENE AND HYDROCHLOROTHIAZIDE [Suspect]
     Route: 048
     Dates: start: 20110820
  11. TRIAMTERENE AND HYDROCHLOROTHIAZIDE [Suspect]
     Route: 048
     Dates: start: 20110630
  12. TRIAMTERENE AND HYDROCHLOROTHIAZIDE [Suspect]
     Route: 048
  13. METOPROLOL SUCCINATE [Suspect]
     Route: 048
     Dates: start: 20110101
  14. GLUCOPHAGE [Concomitant]
     Indication: DIABETES MELLITUS
     Route: 048

REACTIONS (3)
  - DIZZINESS [None]
  - BLOOD PRESSURE DECREASED [None]
  - EUPHORIC MOOD [None]
